FAERS Safety Report 5809595-4 (Version None)
Quarter: 2008Q3

REPORT INFORMATION
  Report Type: 
  Country: None (occurrence: None)
  Receive Date: 20080715
  Receipt Date: 20080630
  Transmission Date: 20090109
  Serious: Yes (Hospitalization)
  Sender: FDA-Public Use
  Company Number: JP-TEVA-174217ISR

PATIENT
  Sex: Male

DRUGS (12)
  1. CISPLATIN [Suspect]
     Indication: SMALL CELL LUNG CANCER METASTATIC
     Dates: start: 20080407, end: 20080513
  2. IRINOTECAN HCL [Suspect]
     Indication: SMALL CELL LUNG CANCER METASTATIC
     Dates: start: 20080407, end: 20080527
  3. ETIZOLAM [Concomitant]
     Indication: INSOMNIA
     Route: 048
     Dates: start: 20080603
  4. OMEPRAZOLE [Concomitant]
     Indication: ABDOMINAL PAIN UPPER
     Route: 048
     Dates: start: 20080414
  5. SODIUM ALGINATE [Concomitant]
     Indication: ABDOMINAL PAIN UPPER
     Route: 048
     Dates: start: 20080513
  6. URSODIOL [Concomitant]
     Indication: ABDOMINAL DISCOMFORT
     Route: 048
     Dates: start: 20080407, end: 20080516
  7. SODIUM BICARBONATE [Concomitant]
     Indication: ABDOMINAL DISCOMFORT
     Route: 048
     Dates: start: 20080407, end: 20080516
  8. MAGNESIUM OXIDE [Concomitant]
     Indication: ABDOMINAL DISCOMFORT
     Route: 048
     Dates: start: 20080408, end: 20080516
  9. ONDANSETRON [Concomitant]
     Indication: ABDOMINAL DISCOMFORT
     Route: 048
     Dates: start: 20080409, end: 20080516
  10. LENOGRASTIM [Concomitant]
     Route: 058
     Dates: start: 20080426, end: 20080426
  11. LENOGRASTIM [Concomitant]
     Route: 058
     Dates: start: 20080428, end: 20080428
  12. LENOGRASTIM [Concomitant]
     Route: 058
     Dates: start: 20080602, end: 20080602

REACTIONS (2)
  - ABDOMINAL PAIN [None]
  - DYSPEPSIA [None]
